FAERS Safety Report 10191903 (Version 1)
Quarter: 2014Q2

REPORT INFORMATION
  Report Type: Spontaneous
  Country: DK (occurrence: DK)
  Receive Date: 20140523
  Receipt Date: 20140523
  Transmission Date: 20141212
  Serious: Yes (Hospitalization, Congenital Anomaly, Other)
  Sender: FDA-Public Use
  Company Number: DK-GLAXOSMITHKLINE-B0995175A

PATIENT
  Age: 0 Day
  Sex: Female
  Weight: 13 kg

DRUGS (2)
  1. FLIXOTIDE [Suspect]
     Indication: ASTHMA
     Route: 064
     Dates: start: 201204
  2. RHINOCORT [Suspect]
     Indication: PRODUCT USED FOR UNKNOWN INDICATION
     Route: 064
     Dates: start: 201203

REACTIONS (3)
  - Type 1 diabetes mellitus [Not Recovered/Not Resolved]
  - Foetal exposure during pregnancy [Not Recovered/Not Resolved]
  - Exposure during breast feeding [Unknown]
